FAERS Safety Report 10011322 (Version 1)
Quarter: 2014Q1

REPORT INFORMATION
  Report Type: Spontaneous
  Country: DK (occurrence: DK)
  Receive Date: 20140314
  Receipt Date: 20140314
  Transmission Date: 20141002
  Serious: Yes (Disabling)
  Sender: FDA-Public Use
  Company Number: DK-009507513-1403DNK004918

PATIENT
  Sex: Female

DRUGS (3)
  1. SIMVASTATIN [Suspect]
     Indication: HYPERCHOLESTEROLAEMIA
     Dosage: 20 MG AT NIGHT
     Route: 048
     Dates: start: 20060217, end: 20060427
  2. SIMVASTATIN [Suspect]
     Dosage: 40 MG, UNK
     Dates: start: 20100112, end: 20120118
  3. EZETROL [Concomitant]
     Indication: HYPERCHOLESTEROLAEMIA
     Dosage: UNK
     Dates: start: 200604, end: 201001

REACTIONS (5)
  - Muscle injury [Recovered/Resolved with Sequelae]
  - Pain [Unknown]
  - Muscle spasms [Unknown]
  - Nightmare [Unknown]
  - Fatigue [Unknown]
